FAERS Safety Report 14668905 (Version 1)
Quarter: 2018Q1

REPORT INFORMATION
  Report Type: Spontaneous
  Country: US (occurrence: US)
  Receive Date: 20180321
  Receipt Date: 20180321
  Transmission Date: 20180509
  Serious: No
  Sender: FDA-Public Use
  Company Number: None

PATIENT
  Age: 15 Year
  Sex: Female
  Weight: 56.25 kg

DRUGS (1)
  1. PREVIFEM [Suspect]
     Active Substance: ETHINYL ESTRADIOL\NORGESTIMATE
     Dosage: ?          QUANTITY:28 TABLET(S);?
     Route: 048
     Dates: start: 20180311

REACTIONS (4)
  - Vomiting [None]
  - Pyrexia [None]
  - Diarrhoea [None]
  - Gastroenteritis viral [None]

NARRATIVE: CASE EVENT DATE: 20180315
